FAERS Safety Report 5052008-3 (Version None)
Quarter: 2006Q3

REPORT INFORMATION
  Report Type: 
  Country: None (occurrence: None)
  Receive Date: 20060711
  Receipt Date: 20060620
  Transmission Date: 20061208
  Serious: Yes (Other)
  Sender: FDA-Public Use
  Company Number: US200605006664

PATIENT
  Age: 64 Year
  Sex: Male

DRUGS (7)
  1. CYMBALTA [Suspect]
     Dosage: 30 MG
     Dates: start: 20060509
  2. FLOVENT [Concomitant]
  3. PROPANOLOL        (PROPANOLOL) [Concomitant]
  4. HYDROCHLOROTHIAZIDE  (HYDROCHOROTHIAZIDE) [Concomitant]
  5. QUINAPRIL HCL [Concomitant]
  6. VIAGRA [Concomitant]
  7. NIASPAN [Concomitant]

REACTIONS (3)
  - CONFUSIONAL STATE [None]
  - DIZZINESS [None]
  - LOSS OF CONSCIOUSNESS [None]
